FAERS Safety Report 12679744 (Version 1)
Quarter: 2016Q3

REPORT INFORMATION
  Report Type: Spontaneous
  Country: US (occurrence: None)
  Receive Date: 20160823
  Receipt Date: 20160823
  Transmission Date: 20161109
  Serious: Yes (Life-Threatening, Disabling)
  Sender: FDA-Public Use
  Company Number: None

PATIENT
  Age: 27 Year
  Sex: Female
  Weight: 77.11 kg

DRUGS (18)
  1. AVELOX [Suspect]
     Active Substance: MOXIFLOXACIN HYDROCHLORIDE
     Indication: SINUSITIS
     Route: 048
     Dates: start: 20080310
  2. CIPROFLOXACIN. [Suspect]
     Active Substance: CIPROFLOXACIN
     Indication: TOOTH DISORDER
  3. MAGNESIUM [Concomitant]
     Active Substance: MAGNESIUM
  4. IRON [Concomitant]
     Active Substance: IRON
  5. CIPROFLOXACIN. [Suspect]
     Active Substance: CIPROFLOXACIN
     Indication: BRONCHITIS
  6. LOOP RECORDER (HEART MONITOR) [Concomitant]
  7. PROMETHAZINE [Concomitant]
     Active Substance: PROMETHAZINE\PROMETHAZINE HYDROCHLORIDE
  8. METOPROLOL. [Concomitant]
     Active Substance: METOPROLOL
  9. CIPROFLOXACIN. [Suspect]
     Active Substance: CIPROFLOXACIN
     Indication: URINARY TRACT INFECTION
  10. ZOFRAN [Concomitant]
     Active Substance: ONDANSETRON HYDROCHLORIDE
  11. ALPHA LIPOIC ACID [Concomitant]
     Active Substance: .ALPHA.-LIPOIC ACID
  12. B VITAMIN COMPLEX [Concomitant]
  13. AVELOX [Suspect]
     Active Substance: MOXIFLOXACIN HYDROCHLORIDE
     Indication: BRONCHITIS
     Route: 048
     Dates: start: 20080310
  14. CIPROFLOXACIN. [Suspect]
     Active Substance: CIPROFLOXACIN
     Indication: SINUSITIS
  15. CYCLOBENZAPRINE [Concomitant]
     Active Substance: CYCLOBENZAPRINE
  16. CLONAZEPAM. [Concomitant]
     Active Substance: CLONAZEPAM
  17. BACLOFEN. [Concomitant]
     Active Substance: BACLOFEN
  18. MECLAZINE [Concomitant]

REACTIONS (23)
  - Hypothyroidism [None]
  - Influenza like illness [None]
  - Hypotension [None]
  - Myalgia [None]
  - Scarlet fever [None]
  - Insomnia [None]
  - Abnormal loss of weight [None]
  - Muscle spasms [None]
  - Cluster headache [None]
  - Fatigue [None]
  - Muscular weakness [None]
  - Muscle contractions involuntary [None]
  - Ataxia [None]
  - Tachycardia [None]
  - Syncope [None]
  - Skin disorder [None]
  - Memory impairment [None]
  - Swelling [None]
  - Neuropathy peripheral [None]
  - Dizziness [None]
  - Hypertension [None]
  - Feeling abnormal [None]
  - Abnormal weight gain [None]

NARRATIVE: CASE EVENT DATE: 20080310
